FAERS Safety Report 7228957-4 (Version None)
Quarter: 2011Q1

REPORT INFORMATION
  Report Type: 
  Country: None (occurrence: None)
  Receive Date: 20110117
  Receipt Date: 20110112
  Transmission Date: 20110831
  Serious: Yes (Other)
  Sender: FDA-Public Use
  Company Number: US-AMGEN-USASP2011000843

PATIENT

DRUGS (1)
  1. ENBREL [Suspect]
     Indication: JUVENILE ARTHRITIS
     Dates: start: 20101223

REACTIONS (8)
  - AGGRESSION [None]
  - RESTLESSNESS [None]
  - IRRITABILITY [None]
  - PAIN [None]
  - SELF INJURIOUS BEHAVIOUR [None]
  - MOOD SWINGS [None]
  - INSOMNIA [None]
  - DRUG INEFFECTIVE [None]
